FAERS Safety Report 5922749-1 (Version None)
Quarter: 2008Q3

REPORT INFORMATION
  Report Type: 
  Country: None (occurrence: None)
  Receive Date: 20080909
  Receipt Date: 20080714
  Transmission Date: 20090109
  Serious: Yes (Death)
  Sender: FDA-Public Use
  Company Number: 163-20785-08070716

PATIENT
  Age: 59 Year
  Sex: Female

DRUGS (2)
  1. THALOMID [Suspect]
     Indication: MULTIPLE MYELOMA
     Dosage: 100 MG, 1 IN 1 D, ORAL, 50MG 1IN 1 D , ORAL
     Route: 048
     Dates: start: 20080602, end: 20080601
  2. THALOMID [Suspect]
     Indication: MULTIPLE MYELOMA
     Dosage: 100 MG, 1 IN 1 D, ORAL, 50MG 1IN 1 D , ORAL
     Route: 048
     Dates: start: 20080623

REACTIONS (1)
  - DEATH [None]
